FAERS Safety Report 10203590 (Version 2)
Quarter: 2014Q2

REPORT INFORMATION
  Report Type: Spontaneous
  Country: GB (occurrence: None)
  Receive Date: 20140523
  Receipt Date: 20140611
  Transmission Date: 20141212
  Serious: Yes (Other)
  Sender: FDA-Public Use
  Company Number: FK201401895

PATIENT
  Age: 74 Year
  Sex: Female
  Weight: 60 kg

DRUGS (22)
  1. ANASTROZOLE [Suspect]
     Indication: BREAST CANCER
     Route: 048
     Dates: start: 20140110, end: 20140128
  2. ALENDRONIC ACID (ALENDRONIC ACID) [Concomitant]
  3. ASPIRIN (ACETYLSALICYLIC ACID) [Concomitant]
  4. BIOTENE DRY MOUTH (BIOTENE/06680101/) [Concomitant]
  5. CALCICHEW D3 (LEKOVIT CA) [Concomitant]
  6. FERROUS FUMARATE (FERROUS FUMARATE) [Concomitant]
  7. OMEPRAZOLE (OMEPRAZOLE) [Concomitant]
  8. PARACETAMOL (PARACETAMOL) [Concomitant]
  9. PREDNISOLONE (PREDNISOLONE) [Concomitant]
  10. SERETIDE (SERETIDE) [Concomitant]
  11. SULFASALAZINE (SULFASALAZINE) [Concomitant]
  12. TIOTROPIUM (TIOTRPIUM) [Concomitant]
  13. TRAMADOL (TRAMADOL) [Concomitant]
  14. VENTOLIN (SALBUTAMOL) [Concomitant]
  15. CARBOCISTEINE (CARBOCISTEINE) [Concomitant]
  16. CLARITHROMYCIN (CLARITHROMYCIN) [Concomitant]
  17. ETHAMBUTOL (ETHAMBUTOL) [Concomitant]
  18. RIFAMPICIN (RIFAMPICIN) [Concomitant]
  19. DIORALYTE (ORAL REHYDRATION SALT) [Concomitant]
  20. LOPERAMIDE (LOPERAMIDE) [Concomitant]
  21. DOXYCYCLINE (DOXYCYCLINE) [Concomitant]
  22. FORTISIP (CARBOHYDRATES NOS W/FATS NOS/MINERA/07459601/) [Concomitant]

REACTIONS (3)
  - Arrhythmia [None]
  - Bradycardia [None]
  - Syncope [None]
